APPROVED DRUG PRODUCT: GUAIFENESIN
Active Ingredient: GUAIFENESIN
Strength: 1.2GM
Dosage Form/Route: TABLET, EXTENDED RELEASE;ORAL
Application: A091009 | Product #002
Applicant: ACTAVIS LABORATORIES FL INC AN INDIRECT WHOLLY OWNED SUB OF TEVA PHARMACEUTICALS USA INC
Approved: Sep 3, 2015 | RLD: No | RS: No | Type: OTC